FAERS Safety Report 6973365-4 (Version None)
Quarter: 2010Q3

REPORT INFORMATION
  Report Type: 
  Country: None (occurrence: None)
  Receive Date: 20100909
  Receipt Date: 20100830
  Transmission Date: 20110219
  Serious: Yes (Hospitalization)
  Sender: FDA-Public Use
  Company Number: CA-JNJFOC-20100900257

PATIENT
  Sex: Female
  Weight: 56.2 kg

DRUGS (22)
  1. REMICADE [Suspect]
     Indication: CROHN'S DISEASE
     Route: 042
  2. REMICADE [Suspect]
     Route: 042
  3. REMICADE [Suspect]
     Route: 042
  4. CITALOPRAM HYDROBROMIDE [Concomitant]
  5. CYCLOBENZAPRINE [Concomitant]
  6. DOMPERIDONE [Concomitant]
  7. SYNTHROID [Concomitant]
  8. MORPHINE [Concomitant]
  9. VITAMIN A [Concomitant]
  10. ZINC [Concomitant]
  11. SUMATRIPTAN [Concomitant]
  12. VITAMIN B [Concomitant]
  13. IMODIUM [Concomitant]
  14. TYLENOL W/ CODEINE [Concomitant]
  15. FENTANYL CITRATE [Concomitant]
  16. GABAPENTIN [Concomitant]
  17. NABILONE [Concomitant]
  18. VALACYCLOVIR [Concomitant]
  19. OLANZAPINE [Concomitant]
  20. LORAZEPAM [Concomitant]
  21. HYDROXYZINE [Concomitant]
  22. CENESTIN [Concomitant]

REACTIONS (5)
  - ABDOMINAL PAIN [None]
  - DEHYDRATION [None]
  - DIARRHOEA [None]
  - NAUSEA [None]
  - VOMITING [None]
